FAERS Safety Report 22093157 (Version 1)
Quarter: 2023Q1

REPORT INFORMATION
  Report Type: Report from Study
  Country: CA (occurrence: CA)
  Receive Date: 20230314
  Receipt Date: 20230314
  Transmission Date: 20230417
  Serious: Yes (Other)
  Sender: FDA-Public Use
  Company Number: CA-OTSUKA-2022_041859

PATIENT
  Age: 78 Year
  Sex: Male

DRUGS (1)
  1. CEDAZURIDINE\DECITABINE [Suspect]
     Active Substance: CEDAZURIDINE\DECITABINE
     Indication: Myelodysplastic syndrome
     Dosage: 3 DF, TABLET (35 MG DECITABINE AND 100 MG CEDAZURIDINE)
     Route: 065
     Dates: start: 20220812

REACTIONS (15)
  - Transfusion [Unknown]
  - Platelet count decreased [Unknown]
  - Burning sensation [Unknown]
  - Alopecia [Unknown]
  - Feeling abnormal [Unknown]
  - Rash macular [Unknown]
  - Insomnia [Unknown]
  - Pain in extremity [Unknown]
  - Arthralgia [Unknown]
  - Hypoaesthesia [Unknown]
  - Constipation [Unknown]
  - Paraesthesia [Unknown]
  - Fatigue [Unknown]
  - Product use issue [Unknown]
  - Therapy interrupted [Unknown]

NARRATIVE: CASE EVENT DATE: 20220812
